FAERS Safety Report 13676112 (Version 1)
Quarter: 2017Q2

REPORT INFORMATION
  Report Type: Spontaneous
  Country: US (occurrence: US)
  Receive Date: 20170622
  Receipt Date: 20170622
  Transmission Date: 20170830
  Serious: No
  Sender: FDA-Public Use
  Company Number: US-AUROBINDO-AUR-APL-2016-15059

PATIENT
  Sex: Male
  Weight: 77.98 kg

DRUGS (1)
  1. CIPROFLOXACIN TABLETS USP 250 MG [Suspect]
     Active Substance: CIPROFLOXACIN
     Indication: CYSTITIS
     Dosage: 250 MG, DAILY
     Route: 048
     Dates: start: 20161030

REACTIONS (1)
  - Pain in extremity [Recovering/Resolving]
